FAERS Safety Report 18923698 (Version 5)
Quarter: 2021Q3

REPORT INFORMATION
  Report Type: Spontaneous
  Country: US (occurrence: US)
  Receive Date: 20210222
  Receipt Date: 20210707
  Transmission Date: 20211014
  Serious: Yes (Other)
  Sender: FDA-Public Use
  Company Number: US-JNJFOC-20210233679

PATIENT
  Age: 79 Year
  Sex: Female
  Weight: 69.01 kg

DRUGS (8)
  1. TIKOSYN [Concomitant]
     Active Substance: DOFETILIDE
  2. ASPRIN [Concomitant]
     Active Substance: ASPIRIN
  3. XARELTO [Suspect]
     Active Substance: RIVAROXABAN
     Indication: CEREBROVASCULAR ACCIDENT PROPHYLAXIS
  4. RAMIPRIL. [Concomitant]
     Active Substance: RAMIPRIL
  5. PREGABALIN. [Concomitant]
     Active Substance: PREGABALIN
  6. METOPROLOL. [Concomitant]
     Active Substance: METOPROLOL
  7. LOVASTATIN. [Concomitant]
     Active Substance: LOVASTATIN
  8. XARELTO [Suspect]
     Active Substance: RIVAROXABAN
     Indication: ATRIAL FIBRILLATION
     Dosage: USING FOR YEARS
     Route: 048

REACTIONS (6)
  - Chest pain [Unknown]
  - Stress [Unknown]
  - Ecchymosis [Recovering/Resolving]
  - Product storage error [Unknown]
  - Poor quality product administered [Unknown]
  - Drug ineffective [Unknown]

NARRATIVE: CASE EVENT DATE: 20210218
